FAERS Safety Report 19866544 (Version 1)
Quarter: 2021Q3

REPORT INFORMATION
  Report Type: Spontaneous
  Country: US (occurrence: US)
  Receive Date: 20210921
  Receipt Date: 20210921
  Transmission Date: 20211014
  Serious: No
  Sender: FDA-Public Use
  Company Number: US-BRAINTREE LABORATORIES, INC.-2020BTE02301

PATIENT
  Age: 66 Year
  Sex: Male
  Weight: 56.7 kg

DRUGS (1)
  1. SUPREP BOWEL PREP [Suspect]
     Active Substance: MAGNESIUM SULFATE\POTASSIUM SULFATE\SODIUM SULFATE
     Indication: COLONOSCOPY
     Dosage: 2 X 6 OZ. BOTTLE
     Route: 048
     Dates: start: 20201115, end: 20201115

REACTIONS (4)
  - Pallor [None]
  - Asthenia [None]
  - Chest pain [None]
  - Tremor [None]

NARRATIVE: CASE EVENT DATE: 20201116
